FAERS Safety Report 13768431 (Version 9)
Quarter: 2020Q1

REPORT INFORMATION
  Report Type: Report from Study
  Country: JP (occurrence: JP)
  Receive Date: 20170719
  Receipt Date: 20200309
  Transmission Date: 20200409
  Serious: Yes (Life-Threatening, Hospitalization, Disabling, Other)
  Sender: FDA-Public Use
  Company Number: JP-ACTELION-A-CH2017-156595

PATIENT
  Age: 30 Year
  Sex: Male

DRUGS (25)
  1. BAKTAR [Suspect]
     Active Substance: SULFAMETHOXAZOLE\TRIMETHOPRIM
     Indication: ANTIVIRAL PROPHYLAXIS
     Dosage: UNK
     Route: 048
     Dates: start: 20160902, end: 20161007
  2. ASPARA-CA [Suspect]
     Active Substance: CALCIUM ASPARTATE
     Indication: OSTEOPOROSIS
     Dosage: 200 MG, BID
     Route: 048
     Dates: start: 20150807, end: 20170328
  3. EDIROL [Suspect]
     Active Substance: ELDECALCITOL
     Indication: OSTEOPOROSIS
     Dosage: 0.75 ?G, QD
     Route: 048
     Dates: start: 20161007, end: 20170328
  4. FEBURIC [Concomitant]
     Active Substance: FEBUXOSTAT
  5. GLAKAY [Concomitant]
     Active Substance: MENATETRENONE
  6. OPSUMIT [Suspect]
     Active Substance: MACITENTAN
     Indication: PULMONARY ARTERIAL HYPERTENSION
     Dosage: 10 MG, QD
     Route: 048
     Dates: start: 20160913, end: 20181026
  7. REVATIO [Concomitant]
     Active Substance: SILDENAFIL CITRATE
  8. LOXONIN [Concomitant]
     Active Substance: LOXOPROFEN SODIUM
  9. BAKTAR [Suspect]
     Active Substance: SULFAMETHOXAZOLE\TRIMETHOPRIM
     Dosage: 1 DF, QD
     Route: 048
     Dates: start: 20170713
  10. URSO [Concomitant]
     Active Substance: URSODIOL
  11. PROGRAF [Concomitant]
     Active Substance: TACROLIMUS
  12. CERTICAN [Suspect]
     Active Substance: EVEROLIMUS
     Indication: IMMUNISATION REACTION
     Dosage: 3 MG, QD
     Route: 048
     Dates: start: 20180828
  13. MONILAC [Concomitant]
     Active Substance: LACTULOSE
  14. GRACEPTOR [Suspect]
     Active Substance: TACROLIMUS
     Indication: IMMUNISATION REACTION
     Dosage: 0.5 MG, QD
     Route: 048
     Dates: start: 20180327, end: 20180828
  15. LASIX [Concomitant]
     Active Substance: FUROSEMIDE
  16. LIVACT [Concomitant]
     Active Substance: AMINO ACIDS, SOURCE UNSPECIFIED
  17. AMINOLEBAN EN [Concomitant]
     Active Substance: UNSPECIFIED INGREDIENT
  18. CELLCEPT [Concomitant]
     Active Substance: MYCOPHENOLATE MOFETIL\MYCOPHENOLATE MOFETIL HYDROCHLORIDE
  19. FORTEO [Suspect]
     Active Substance: TERIPARATIDE
     Indication: OSTEOPOROSIS
     Dosage: 600 ?G, QD
     Route: 042
     Dates: start: 201508, end: 20170328
  20. GRACEPTOR [Suspect]
     Active Substance: TACROLIMUS
     Dosage: 1 MG, QD
     Route: 048
  21. ALDACTONE A [Concomitant]
     Active Substance: SPIRONOLACTONE
  22. PROMAC [Concomitant]
     Active Substance: NITROFURANTOIN
     Indication: OSTEOPOROSIS
     Dosage: 0.75 MG, QD
     Route: 048
     Dates: start: 20161007, end: 20170328
  23. NEXIUM [Concomitant]
     Active Substance: ESOMEPRAZOLE MAGNESIUM
  24. SAMSCA [Concomitant]
     Active Substance: TOLVAPTAN
  25. PREDNISOLONE. [Concomitant]
     Active Substance: PREDNISOLONE

REACTIONS (19)
  - Hepatic encephalopathy [Recovering/Resolving]
  - Anaemia [Recovering/Resolving]
  - Hypercalcaemia [Recovering/Resolving]
  - Hypocalcaemia [Recovering/Resolving]
  - Suture insertion [Unknown]
  - Pancytopenia [Recovered/Resolved]
  - Acute kidney injury [Recovering/Resolving]
  - Wound [Recovered/Resolved]
  - Hypokalaemia [Not Recovered/Not Resolved]
  - Liver transplant [Unknown]
  - Splint application [Unknown]
  - Liver abscess [Recovering/Resolving]
  - Umbilical hernia [Recovered/Resolved]
  - Dehydration [Recovering/Resolving]
  - Foot fracture [Recovered/Resolved]
  - Hernia repair [Unknown]
  - Pneumonia [Recovering/Resolving]
  - Blood bilirubin increased [Recovered/Resolved]
  - Renal impairment [Recovered/Resolved]

NARRATIVE: CASE EVENT DATE: 20161007
